FAERS Safety Report 4951852-8 (Version None)
Quarter: 2006Q1

REPORT INFORMATION
  Report Type: 
  Country: None (occurrence: None)
  Receive Date: 20060323
  Receipt Date: 20051026
  Transmission Date: 20060701
  Serious: Yes (Hospitalization, Disabling)
  Sender: FDA-Public Use
  Company Number: US-MERCK-0510USA09790

PATIENT
  Age: 46 Year
  Sex: Male
  Weight: 123 kg

DRUGS (1)
  1. VIOXX [Suspect]
     Indication: BACK PAIN
     Route: 048
     Dates: start: 20001101, end: 20011101

REACTIONS (3)
  - BACK INJURY [None]
  - CARDIOVASCULAR DISORDER [None]
  - INTERVERTEBRAL DISC DISORDER [None]
